FAERS Safety Report 4339989-8 (Version None)
Quarter: 2004Q2

REPORT INFORMATION
  Report Type: 
  Country: None (occurrence: None)
  Receive Date: 20040414
  Receipt Date: 20040414
  Transmission Date: 20050107
  Serious: Yes (Hospitalization)
  Sender: FDA-Public Use
  Company Number: None

PATIENT
  Age: 17 Year
  Sex: Female
  Weight: 54.4316 kg

DRUGS (2)
  1. AMNESTEEM [Suspect]
     Indication: ACNE CYSTIC
     Dosage: 1 Q PM PO
     Route: 048
     Dates: start: 20031012
  2. AMNESTEEM [Suspect]
     Indication: ACNE CYSTIC
     Dosage: 1 PO Q AM
     Route: 048
     Dates: start: 20031012

REACTIONS (3)
  - ACNE CYSTIC [None]
  - DISEASE RECURRENCE [None]
  - SUICIDAL IDEATION [None]
